FAERS Safety Report 10978859 (Version 1)
Quarter: 2015Q2

REPORT INFORMATION
  Report Type: Spontaneous
  Country: US (occurrence: US)
  Receive Date: 20150402
  Receipt Date: 20150402
  Transmission Date: 20150821
  Serious: Yes (Other)
  Sender: FDA-Public Use
  Company Number: US-ELI_LILLY_AND_COMPANY-US201503008493

PATIENT
  Sex: Male

DRUGS (4)
  1. CYRAMZA [Suspect]
     Active Substance: RAMUCIRUMAB
     Indication: OESOPHAGEAL ADENOCARCINOMA
     Dosage: UNK, UNKNOWN
     Route: 065
  2. CARBOPLATIN. [Concomitant]
     Active Substance: CARBOPLATIN
     Dosage: UNK, UNKNOWN
  3. TAXOL [Concomitant]
     Active Substance: PACLITAXEL
     Dosage: UNK, UNKNOWN
  4. PLASMA [Concomitant]
     Active Substance: HUMAN PLASMA
     Dosage: UNK, UNKNOWN

REACTIONS (1)
  - Orthostatic hypotension [Unknown]
